FAERS Safety Report 20671242 (Version 1)
Quarter: 2022Q2

REPORT INFORMATION
  Report Type: Spontaneous
  Country: IN (occurrence: IN)
  Receive Date: 20220404
  Receipt Date: 20220404
  Transmission Date: 20220721
  Serious: Yes (Hospitalization, Other)
  Sender: FDA-Public Use
  Company Number: IN-NOVARTISPH-NVSC2020IN330926

PATIENT
  Age: 32 Year
  Sex: Female

DRUGS (12)
  1. SIMULECT [Suspect]
     Active Substance: BASILIXIMAB
     Indication: Renal transplant
     Dosage: 20 MG, UNKNOWN
     Route: 065
     Dates: start: 20201122
  2. SIMULECT [Suspect]
     Active Substance: BASILIXIMAB
     Dosage: 20 MG, UNKNOWN
     Route: 065
     Dates: start: 20201126
  3. PREDNISOLONE [Concomitant]
     Active Substance: PREDNISOLONE
     Indication: Product used for unknown indication
     Dosage: 30 MG, QD (1 AT 9 AM AFTER FOOD)
     Route: 048
  4. PAN [Concomitant]
     Indication: Product used for unknown indication
     Dosage: 40 MG, QD (IN THE MORNING BEFORE FOOD)
     Route: 048
  5. VALGANCICLOVIR [Concomitant]
     Active Substance: VALGANCICLOVIR
     Indication: Product used for unknown indication
     Dosage: 450 MG, QD (AT 2PM AFTER FOOD)
     Route: 048
  6. FLUCONAZOLE [Concomitant]
     Active Substance: FLUCONAZOLE
     Indication: Product used for unknown indication
     Dosage: 150 MG, QD (AT 2PM AFTER FOOD)
     Route: 048
  7. MET XL [Concomitant]
     Indication: Product used for unknown indication
     Dosage: 25 MG, BID (1 AT 10 AM AND 1 AT 10 PM) AFTER FOOD
     Route: 048
  8. ARKAMIN [Concomitant]
     Indication: Product used for unknown indication
     Dosage: 100 UG, TID (1 AT 11 AM, 1 AT 5 PM, 1 AT 11 PM) AFTER FOOD
     Route: 048
  9. PREGABALIN [Concomitant]
     Active Substance: PREGABALIN
     Indication: Product used for unknown indication
     Dosage: 75 MG, QD (1 AT NIGHT AFTER FOOD)
     Route: 048
  10. AMLODIPINE BESYLATE [Concomitant]
     Active Substance: AMLODIPINE BESYLATE
     Indication: Product used for unknown indication
     Dosage: 5 MG, BID (1 AT 8 AM AND 1 AT 8 PM) AFTER FOOD
     Route: 048
  11. TACROLIMUS [Concomitant]
     Active Substance: TACROLIMUS
     Indication: Product used for unknown indication
     Dosage: 4 MG, BID (1 AT 7 AM AND 1 AT 7 PM) BEFORE FOOD
     Route: 048
  12. MYCOPHENOLATE MOFETIL [Concomitant]
     Active Substance: MYCOPHENOLATE MOFETIL
     Indication: Product used for unknown indication
     Dosage: 360 MG, BID (1 AT 8 AM AND 1 AT 8 PM) AFTER FOOD
     Route: 048

REACTIONS (8)
  - Kidney transplant rejection [Recovered/Resolved]
  - Complications of transplanted kidney [Unknown]
  - Glomerulosclerosis [Unknown]
  - Glomerulonephritis [Unknown]
  - Tubulointerstitial nephritis [Unknown]
  - Lymphocytic infiltration [Unknown]
  - Capillaritis [Unknown]
  - Vasculitis [Unknown]

NARRATIVE: CASE EVENT DATE: 20201201
